FAERS Safety Report 11461980 (Version 1)
Quarter: 2015Q3

REPORT INFORMATION
  Report Type: Spontaneous
  Country: US (occurrence: US)
  Receive Date: 20150831
  Receipt Date: 20150831
  Transmission Date: 20151125
  Serious: Yes (Other)
  Sender: FDA-Public Use
  Company Number: US-ELI_LILLY_AND_COMPANY-US200911003882

PATIENT
  Age: 50 Year
  Sex: Female

DRUGS (2)
  1. CYMBALTA [Suspect]
     Active Substance: DULOXETINE HYDROCHLORIDE
     Dosage: 60 MG, DAILY (1/D)
     Dates: start: 20091127, end: 201003
  2. CYMBALTA [Suspect]
     Active Substance: DULOXETINE HYDROCHLORIDE
     Indication: IRRITABLE BOWEL SYNDROME
     Dosage: 60 MG, DAILY (1/D)
     Route: 065
     Dates: start: 20090820, end: 20090920

REACTIONS (13)
  - Hypotension [Unknown]
  - Abdominal pain [Not Recovered/Not Resolved]
  - Pain [Recovered/Resolved]
  - Abnormal dreams [Unknown]
  - Seizure [Unknown]
  - Potentiating drug interaction [Unknown]
  - Eating disorder [Unknown]
  - Stress [Unknown]
  - Nausea [Not Recovered/Not Resolved]
  - Dyspepsia [Unknown]
  - Vomiting [Unknown]
  - Increased viscosity of bronchial secretion [Unknown]
  - Insomnia [Unknown]

NARRATIVE: CASE EVENT DATE: 20090920
